FAERS Safety Report 8785486 (Version 1)
Quarter: 2012Q4

REPORT INFORMATION
  Report Type: 
  Country: FR (occurrence: FR)
  Receive Date: 20120914
  Receipt Date: 20120914
  Transmission Date: 20130627
  Serious: Yes (Hospitalization)
  Sender: FDA-Public Use
  Company Number: FR-UCBSA-065366

PATIENT
  Age: 63 Year
  Sex: Female

DRUGS (7)
  1. KEPPRA [Suspect]
     Indication: CONVULSION
     Dosage: DAILY DOSE 1000 MG
     Route: 048
     Dates: start: 20120404, end: 20120804
  2. ORACILLINE [Suspect]
     Route: 048
     Dates: start: 20120405, end: 2012
  3. ORACILLINE [Suspect]
     Route: 048
     Dates: start: 2012, end: 20120809
  4. SOLIRIS [Suspect]
     Route: 042
     Dates: start: 20120405, end: 201205
  5. TRIATEC [Concomitant]
     Indication: HYPERTENSION
     Dosage: 1.25 MG
     Route: 048
     Dates: start: 201204, end: 201206
  6. INEXIUM [Concomitant]
     Dosage: DAILY DOSE 20 MG
     Route: 048
  7. FORTIMEL [Concomitant]
     Dosage: ONE UNIT DAILY

REACTIONS (2)
  - Aplastic anaemia [Not Recovered/Not Resolved]
  - Thrombocytopenia [None]
